FAERS Safety Report 16213896 (Version 1)
Quarter: 2019Q2

REPORT INFORMATION
  Report Type: Spontaneous
  Country: US (occurrence: US)
  Receive Date: 20190418
  Receipt Date: 20190418
  Transmission Date: 20190711
  Serious: No
  Sender: FDA-Public Use
  Company Number: US-SEBELA IRELAND LIMITED-2018SEB00253

PATIENT
  Sex: Female

DRUGS (1)
  1. IMURAN [Suspect]
     Active Substance: AZATHIOPRINE
     Indication: DERMATOMYOSITIS
     Dosage: UNK

REACTIONS (2)
  - Drug hypersensitivity [Unknown]
  - Off label use [Recovered/Resolved]
